FAERS Safety Report 21542253 (Version 1)
Quarter: 2022Q4

REPORT INFORMATION
  Report Type: Spontaneous
  Country: US (occurrence: None)
  Receive Date: 20221102
  Receipt Date: 20221102
  Transmission Date: 20230112
  Serious: Yes (Other)
  Sender: FDA-Public Use
  Company Number: 2022A355663

PATIENT
  Sex: Female

DRUGS (1)
  1. FASENRA [Suspect]
     Active Substance: BENRALIZUMAB
     Route: 058

REACTIONS (4)
  - Mycobacterium avium complex infection [Unknown]
  - Pneumonitis [Recovering/Resolving]
  - Bronchiectasis [Unknown]
  - Polymyalgia rheumatica [Unknown]
